FAERS Safety Report 19412008 (Version 1)
Quarter: 2021Q2

REPORT INFORMATION
  Report Type: Spontaneous
  Country: CA (occurrence: CA)
  Receive Date: 20210614
  Receipt Date: 20210614
  Transmission Date: 20210717
  Serious: Yes (Other)
  Sender: FDA-Public Use
  Company Number: CA-CELLTRION INC.-2021CA007432

PATIENT

DRUGS (6)
  1. LANTUS [Concomitant]
     Active Substance: INSULIN GLARGINE
     Indication: TYPE 1 DIABETES MELLITUS
     Dosage: 1 DF, DOSE VARIES DEPENDING ON HER SUGARS
  2. NAPROXEN. [Concomitant]
     Active Substance: NAPROXEN
     Dosage: 1 DF
     Route: 065
  3. METHOTREXATE. [Concomitant]
     Active Substance: METHOTREXATE
     Indication: ANKYLOSING SPONDYLITIS
     Dosage: 20 MG, WEEKLY
     Route: 065
     Dates: start: 2014
  4. INFLECTRA [Suspect]
     Active Substance: INFLIXIMAB-DYYB
     Dosage: 350 MG, AT 0, 2 AND 6, THEN EVERY 8 WEEKS
     Route: 042
     Dates: start: 20210218
  5. INFLECTRA [Suspect]
     Active Substance: INFLIXIMAB-DYYB
     Indication: ANKYLOSING SPONDYLITIS
     Dosage: 350 MG, AT 0, 2 AND 6, THEN EVERY 8 WEEKS
     Route: 042
     Dates: start: 20170610, end: 2021
  6. NOVORAPID [Concomitant]
     Active Substance: INSULIN ASPART
     Indication: TYPE 1 DIABETES MELLITUS
     Dosage: 1 DF, DOSE VARIES DEPENDING ON HER SUGARS

REACTIONS (6)
  - Apathy [Unknown]
  - Asthenia [Unknown]
  - Somnolence [Unknown]
  - Heavy menstrual bleeding [Unknown]
  - Off label use [Unknown]
  - Fatigue [Unknown]

NARRATIVE: CASE EVENT DATE: 2019
